FAERS Safety Report 7098237-9 (Version None)
Quarter: 2010Q4

REPORT INFORMATION
  Report Type: 
  Country: None (occurrence: None)
  Receive Date: 20101105
  Receipt Date: 20101025
  Transmission Date: 20110411
  Serious: Yes (Hospitalization)
  Sender: FDA-Public Use
  Company Number: 2010100044

PATIENT
  Age: 21 Year
  Sex: Male

DRUGS (3)
  1. D-PENICILLAMINE [Suspect]
     Indication: HEPATO-LENTICULAR DEGENERATION
     Dosage: 1200 MG, DAILY, ORAL
     Route: 048
  2. ZINC [Concomitant]
  3. MULTIVITAMINS (VITAMIN B1, VITAMIN B6, VITAMIN B12) [Concomitant]

REACTIONS (11)
  - APATHY [None]
  - ATAXIA [None]
  - BRADYKINESIA [None]
  - COPPER DEFICIENCY [None]
  - DROOLING [None]
  - DYSARTHRIA [None]
  - DYSPHONIA [None]
  - DYSTONIA [None]
  - GAIT DISTURBANCE [None]
  - STATUS EPILEPTICUS [None]
  - TREMOR [None]
